FAERS Safety Report 9167830 (Version 2)
Quarter: 2013Q3

REPORT INFORMATION
  Report Type: Report from Study
  Country: CA (occurrence: CA)
  Receive Date: 20130318
  Receipt Date: 20130827
  Transmission Date: 20140515
  Serious: Yes (Other)
  Sender: FDA-Public Use
  Company Number: PHHY2013CA025641

PATIENT
  Age: 36 Year
  Sex: Female

DRUGS (7)
  1. CLOZARIL [Suspect]
     Indication: SCHIZOPHRENIA
     Dosage: UNK UKN, UNK
     Dates: start: 20110221
  2. CLOZARIL [Suspect]
     Dosage: 250 MG, QD
     Route: 048
     Dates: start: 201104
  3. EPIVAL [Concomitant]
     Dosage: 750 MG, (AT NIGHT)
  4. ABILIFY [Concomitant]
     Dosage: 4 MG, (AT MORNING)
  5. RIVOTRIL [Concomitant]
     Dosage: 2 MG, (AT NIGHT)
  6. RESTORIL [Concomitant]
     Dosage: 15 MG, (AT NIGHT) PRN
  7. KEMADRIN [Concomitant]
     Dosage: 25 MG, BID (AS NEEDED)

REACTIONS (2)
  - Neurogenic shock [Recovered/Resolved]
  - Orthostatic hypotension [Recovered/Resolved]
